FAERS Safety Report 9861252 (Version 1)
Quarter: 2014Q1

REPORT INFORMATION
  Report Type: Spontaneous
  Country: AR (occurrence: AR)
  Receive Date: 20140202
  Receipt Date: 20140202
  Transmission Date: 20141002
  Serious: No
  Sender: FDA-Public Use
  Company Number: AR-ALLERGAN-1304582US

PATIENT
  Sex: Female

DRUGS (3)
  1. BOTOX [Suspect]
     Indication: SKIN WRINKLING
     Dosage: 30 UNITS, SINGLE
     Route: 030
     Dates: start: 20130304, end: 20130304
  2. BOTOX [Suspect]
     Indication: SKIN WRINKLING
     Dosage: 18 UNITS, SINGLE
     Route: 030
     Dates: start: 20130304, end: 20130305
  3. BOTOX [Suspect]
     Dosage: 2 UNITS, SINGLE
     Route: 030
     Dates: start: 20130304, end: 20130304

REACTIONS (2)
  - Off label use [Unknown]
  - Drug ineffective [Unknown]
